FAERS Safety Report 15766793 (Version 2)
Quarter: 2019Q1

REPORT INFORMATION
  Report Type: Spontaneous
  Country: IT (occurrence: IT)
  Receive Date: 20181227
  Receipt Date: 20190220
  Transmission Date: 20190417
  Serious: Yes (Death, Hospitalization, Other)
  Sender: FDA-Public Use
  Company Number: IT-AMGEN-ITASP2018178488

PATIENT
  Age: 65 Year
  Sex: Male

DRUGS (4)
  1. CARFILZOMIB [Suspect]
     Active Substance: CARFILZOMIB
     Dosage: 56 MG/M2, EVERY 2 DAYS-5 DAYS SUSPENSION(FOR A TOTAL OF 3 ADMINISTRATION), 28 DAY CYCLE
     Route: 042
     Dates: start: 2016, end: 20160331
  2. CARFILZOMIB [Suspect]
     Active Substance: CARFILZOMIB
     Indication: PLASMA CELL MYELOMA
     Dosage: 20 MG/M2, UNK
     Route: 042
     Dates: start: 20160128, end: 2016
  3. DEXAMETHASONE. [Concomitant]
     Active Substance: DEXAMETHASONE
     Indication: PLASMA CELL MYELOMA
     Dosage: 20 MG, EVERY 2 DAYS-5 DAYS SUSPENSION(FOR A TOTAL OF 3 ADMINISTRATION), 28 DAY CYCLE
     Route: 042
     Dates: start: 20160115
  4. CYCLOPHOSPHAMIDE. [Concomitant]
     Active Substance: CYCLOPHOSPHAMIDE
     Indication: PLASMA CELL MYELOMA
     Dosage: 300 MG/M2, QWK
     Route: 048
     Dates: start: 20160128

REACTIONS (8)
  - Plasma cell myeloma [Fatal]
  - Off label use [Unknown]
  - Ventricular hypokinesia [Unknown]
  - Left ventricular dysfunction [Unknown]
  - Atrial fibrillation [Unknown]
  - Cardiomegaly [Unknown]
  - Pleural effusion [Unknown]
  - Pulmonary hypertension [Unknown]

NARRATIVE: CASE EVENT DATE: 201512
